FAERS Safety Report 15785380 (Version 1)
Quarter: 2019Q1

REPORT INFORMATION
  Report Type: Spontaneous
  Country: US (occurrence: US)
  Receive Date: 20190102
  Receipt Date: 20190102
  Transmission Date: 20190417
  Serious: Yes (Hospitalization, Disabling)
  Sender: FDA-Public Use
  Company Number: None

PATIENT
  Age: 26 Year
  Sex: Male
  Weight: 130.5 kg

DRUGS (2)
  1. VITAMIN D3 [Concomitant]
     Active Substance: CHOLECALCIFEROL
  2. VENLAFAXINE HCL XR [Suspect]
     Active Substance: VENLAFAXINE HYDROCHLORIDE
     Indication: DEPRESSION
     Dosage: ?          QUANTITY:1 CAPSULE(S);?
     Route: 048

REACTIONS (30)
  - Disturbance in attention [None]
  - Nausea [None]
  - Anxiety [None]
  - Cognitive disorder [None]
  - Semen viscosity decreased [None]
  - Suicidal ideation [None]
  - Drug withdrawal syndrome [None]
  - Crying [None]
  - Tinnitus [None]
  - Insomnia [None]
  - Feeling abnormal [None]
  - Vomiting [None]
  - Memory impairment [None]
  - Heart rate increased [None]
  - Decreased appetite [None]
  - Intrusive thoughts [None]
  - Panic attack [None]
  - Erectile dysfunction [None]
  - Dyspepsia [None]
  - Diarrhoea [None]
  - Hypoaesthesia [None]
  - Premature ejaculation [None]
  - Constipation [None]
  - Retrograde ejaculation [None]
  - Coordination abnormal [None]
  - Muscle twitching [None]
  - Burning sensation [None]
  - Anhedonia [None]
  - Flashback [None]
  - Apathy [None]

NARRATIVE: CASE EVENT DATE: 20180329
